FAERS Safety Report 21294119 (Version 2)
Quarter: 2022Q3

REPORT INFORMATION
  Report Type: Spontaneous
  Country: CN (occurrence: CN)
  Receive Date: 20220905
  Receipt Date: 20220907
  Transmission Date: 20221027
  Serious: Yes (Other)
  Sender: FDA-Public Use
  Company Number: CN-MLMSERVICE-20220818-3742138-1

PATIENT
  Age: 47 Year
  Sex: Male
  Weight: 77 kg

DRUGS (10)
  1. EPIRUBICIN HYDROCHLORIDE [Suspect]
     Active Substance: EPIRUBICIN HYDROCHLORIDE
     Indication: Hepatocellular carcinoma
     Dosage: 20 MG
     Route: 013
  2. EPIRUBICIN HYDROCHLORIDE [Suspect]
     Active Substance: EPIRUBICIN HYDROCHLORIDE
     Indication: Transcatheter arterial chemoembolisation
  3. LEUCOVORIN CALCIUM [Suspect]
     Active Substance: LEUCOVORIN CALCIUM
     Indication: Hepatocellular carcinoma
     Dosage: 300 MG
     Route: 013
  4. LEUCOVORIN CALCIUM [Suspect]
     Active Substance: LEUCOVORIN CALCIUM
     Indication: Transcatheter arterial chemoembolisation
  5. FLUOROURACIL [Suspect]
     Active Substance: FLUOROURACIL
     Indication: Hepatocellular carcinoma
     Dosage: 1000 MG
     Route: 013
  6. FLUOROURACIL [Suspect]
     Active Substance: FLUOROURACIL
     Indication: Transcatheter arterial chemoembolisation
  7. GELATIN [Concomitant]
     Active Substance: GELATIN
     Indication: Hepatocellular carcinoma
     Dosage: UNK
     Route: 013
  8. GELATIN [Concomitant]
     Active Substance: GELATIN
     Indication: Transcatheter arterial chemoembolisation
  9. IODIZED OIL [Concomitant]
     Active Substance: IODIZED OIL
     Indication: Hepatocellular carcinoma
     Dosage: 7 ML
     Route: 013
  10. IODIZED OIL [Concomitant]
     Active Substance: IODIZED OIL
     Indication: Transcatheter arterial chemoembolisation

REACTIONS (2)
  - Posterior reversible encephalopathy syndrome [Recovered/Resolved]
  - Post embolisation syndrome [Recovered/Resolved]
